FAERS Safety Report 14187197 (Version 1)
Quarter: 2017Q4

REPORT INFORMATION
  Report Type: Spontaneous
  Country: TW (occurrence: TW)
  Receive Date: 20171114
  Receipt Date: 20171114
  Transmission Date: 20180321
  Serious: Yes (Other)
  Sender: FDA-Public Use
  Company Number: TW-BAYER-2017-218999

PATIENT
  Age: 36 Year
  Sex: Female
  Weight: 47 kg

DRUGS (1)
  1. GADOVIST [Suspect]
     Active Substance: GADOBUTROL
     Dosage: 5 ML, ONCE
     Dates: start: 20171110, end: 20171110

REACTIONS (3)
  - Shock [None]
  - Blood pressure increased [None]
  - Nausea [None]

NARRATIVE: CASE EVENT DATE: 20171110
